FAERS Safety Report 26000865 (Version 1)
Quarter: 2025Q4

REPORT INFORMATION
  Report Type: Spontaneous
  Country: US (occurrence: US)
  Receive Date: 20251105
  Receipt Date: 20251105
  Transmission Date: 20260117
  Serious: No
  Sender: ANI
  Company Number: US-ANIPHARMA-2025-US-044108

PATIENT
  Age: 39 Year
  Sex: Female

DRUGS (26)
  1. CORTICOTROPIN [Suspect]
     Active Substance: CORTICOTROPIN
     Indication: Ankylosing spondylitis
     Dosage: 80 UNITS TWICE WEEKLY, CHANGED TO EVERY 48 HOURS PER DOCTOR
     Route: 058
  2. AMLODIPINE [Concomitant]
     Active Substance: AMLODIPINE BESYLATE
  3. ARMODAFINIL [Concomitant]
     Active Substance: ARMODAFINIL
  4. PILOCARPINE HYDROCHLORIDE [Concomitant]
     Active Substance: PILOCARPINE HYDROCHLORIDE
  5. TRIAMCINOLONE ACETONIDE [Concomitant]
     Active Substance: TRIAMCINOLONE ACETONIDE
  6. GABAPENTIN [Concomitant]
     Active Substance: GABAPENTIN
  7. HYOSCYAMINE SULFATE [Concomitant]
     Active Substance: HYOSCYAMINE SULFATE
  8. CYANOCOBALAMIN [Concomitant]
     Active Substance: CYANOCOBALAMIN
  9. CALCIUM CITRATE [Concomitant]
     Active Substance: CALCIUM CITRATE
  10. ESCITALOPRAM OXALATE [Concomitant]
     Active Substance: ESCITALOPRAM OXALATE
  11. HYDROXYCHLOROQUINE SULFATE [Concomitant]
     Active Substance: HYDROXYCHLOROQUINE SULFATE
  12. METHOCARBAMOL [Concomitant]
     Active Substance: METHOCARBAMOL
  13. VOQUEZNA [Concomitant]
     Active Substance: VONOPRAZAN FUMARATE
  14. DORZOLAMIDE HYDROCHLORIDE [Concomitant]
     Active Substance: DORZOLAMIDE HYDROCHLORIDE
  15. BENLYSTA [Concomitant]
     Active Substance: BELIMUMAB
  16. METHYLPREDNISOLONE DOSE PAK [Concomitant]
  17. ADVAIR HFA [Concomitant]
     Active Substance: FLUTICASONE PROPIONATE\SALMETEROL XINAFOATE
  18. BUPROPION HYDROCHLORIDE E [Concomitant]
  19. VITAMIN D2 [Concomitant]
     Active Substance: ERGOCALCIFEROL
  20. TRAMADOL HCL [Concomitant]
     Active Substance: TRAMADOL HYDROCHLORIDE
  21. IRON [Concomitant]
     Active Substance: IRON
  22. LEVOMEFOLIC ACID [Concomitant]
     Active Substance: LEVOMEFOLIC ACID
  23. LEVOTHYROXINE SODIUM [Concomitant]
     Active Substance: LEVOTHYROXINE SODIUM
  24. LATANOPROST [Concomitant]
     Active Substance: LATANOPROST
  25. ALBUTEROL [Concomitant]
     Active Substance: ALBUTEROL
  26. TYLENOL 8 HR ARTHRITIS PAIN [Concomitant]
     Active Substance: ACETAMINOPHEN

REACTIONS (1)
  - Injection site swelling [Recovered/Resolved]
